FAERS Safety Report 15301095 (Version 1)
Quarter: 2018Q3

REPORT INFORMATION
  Report Type: Report from Study
  Country: IL (occurrence: IL)
  Receive Date: 20180821
  Receipt Date: 20180821
  Transmission Date: 20181010
  Serious: Yes (Hospitalization)
  Sender: FDA-Public Use
  Company Number: IL-SA-2017SA251677

PATIENT
  Age: 31 Year
  Sex: Female

DRUGS (2)
  1. ALEMTUZUMAB [Suspect]
     Active Substance: ALEMTUZUMAB
     Dosage: UNK UNK,UNK
     Route: 041
     Dates: start: 20171205
  2. ALEMTUZUMAB [Suspect]
     Active Substance: ALEMTUZUMAB
     Indication: MULTIPLE SCLEROSIS
     Dosage: 12 MG, 5 DAYS
     Route: 041
     Dates: start: 20171203, end: 20171205

REACTIONS (3)
  - Memory impairment [Not Recovered/Not Resolved]
  - Pain in extremity [Recovering/Resolving]
  - Hot flush [Not Recovered/Not Resolved]

NARRATIVE: CASE EVENT DATE: 20171205
